FAERS Safety Report 8051601-3 (Version None)
Quarter: 2012Q1

REPORT INFORMATION
  Report Type: 
  Country: None (occurrence: None)
  Receive Date: 20120118
  Receipt Date: 20120110
  Transmission Date: 20120608
  Serious: Yes (Hospitalization, Other)
  Sender: FDA-Public Use
  Company Number: US-BIOGENIDEC-2008BI028789

PATIENT
  Age: 54 Year
  Sex: Male

DRUGS (8)
  1. FENOFIBRATE [Concomitant]
     Indication: PRODUCT USED FOR UNKNOWN INDICATION
  2. VENLAFAXINE [Concomitant]
     Indication: ANXIETY
  3. CLONAZEPAM [Concomitant]
     Indication: CONVULSION
  4. TRAZODONE HCL [Concomitant]
     Indication: SLEEP DISORDER
  5. LEVETIRACETAM [Concomitant]
     Indication: PRODUCT USED FOR UNKNOWN INDICATION
  6. AVONEX [Suspect]
     Route: 030
     Dates: start: 20000930
  7. AVONEX [Suspect]
     Indication: MULTIPLE SCLEROSIS
     Route: 030
     Dates: start: 20111216
  8. SIMVASTATIN [Concomitant]
     Indication: BLOOD CHOLESTEROL INCREASED

REACTIONS (5)
  - DEHYDRATION [None]
  - CONVULSION [None]
  - CYSTITIS [None]
  - GRAND MAL CONVULSION [None]
  - HEAT STROKE [None]
